FAERS Safety Report 6165037-3 (Version None)
Quarter: 2009Q2

REPORT INFORMATION
  Report Type: 
  Country: None (occurrence: None)
  Receive Date: 20090423
  Receipt Date: 20090417
  Transmission Date: 20091009
  Serious: Yes (Hospitalization)
  Sender: FDA-Public Use
  Company Number: US-BAYER-200911124BCC

PATIENT
  Age: 41 Year
  Sex: Male
  Weight: 125 kg

DRUGS (9)
  1. ALKA SELTZER PLUS EFFERVESCENT SPARKLING ORIGINAL COLD [Suspect]
     Indication: NASOPHARYNGITIS
     Dosage: TOTAL DAILY DOSE: 1 DF  UNIT DOSE: 1 DF
     Route: 048
     Dates: start: 20081201
  2. ALKA SELTZER PLUS EFFERVESCENT SPARKLING ORIGINAL COLD [Interacting]
     Dosage: TOTAL DAILY DOSE: 1 DF  UNIT DOSE: 1 DF
     Route: 048
     Dates: start: 20080301
  3. ALKA SELTZER PLUS EFFERVESCENT SPARKLING ORIGINAL COLD [Interacting]
     Dosage: TOTAL DAILY DOSE: 1 DF  UNIT DOSE: 1 DF
     Route: 048
     Dates: start: 20081101
  4. UNKNOWN DRUG [Interacting]
  5. LISINOPRIL [Concomitant]
  6. XANAX [Concomitant]
  7. MESTINON [Concomitant]
     Dates: end: 20080801
  8. LEXAPRO [Concomitant]
  9. CELEXA [Concomitant]

REACTIONS (7)
  - APHASIA [None]
  - CEREBROVASCULAR ACCIDENT [None]
  - DYSARTHRIA [None]
  - FACIAL PALSY [None]
  - HEMIPARESIS [None]
  - HYPOAESTHESIA ORAL [None]
  - MUSCULAR WEAKNESS [None]
